FAERS Safety Report 17070513 (Version 2)
Quarter: 2019Q4

REPORT INFORMATION
  Report Type: Spontaneous
  Country: HU (occurrence: HU)
  Receive Date: 20191125
  Receipt Date: 20191209
  Transmission Date: 20200122
  Serious: Yes (Other)
  Sender: FDA-Public Use
  Company Number: HU-PFIZER INC-2019500537

PATIENT
  Sex: Male

DRUGS (3)
  1. CRIZOTINIB [Suspect]
     Active Substance: CRIZOTINIB
     Indication: LUNG ADENOCARCINOMA
     Dosage: UNK
  2. LORLATINIB [Suspect]
     Active Substance: LORLATINIB
     Dosage: UNK
  3. CERITINIB [Suspect]
     Active Substance: CERITINIB
     Indication: LUNG ADENOCARCINOMA
     Dosage: UNK

REACTIONS (3)
  - Hepatic failure [Recovered/Resolved]
  - Neoplasm progression [Unknown]
  - Upper respiratory tract infection [Recovered/Resolved]
